FAERS Safety Report 11363742 (Version 1)
Quarter: 2015Q3

REPORT INFORMATION
  Report Type: Report from Study
  Country: BR (occurrence: BR)
  Receive Date: 20150811
  Receipt Date: 20150811
  Transmission Date: 20151125
  Serious: Yes (Other)
  Sender: FDA-Public Use
  Company Number: BR-ROCHE-1619078

PATIENT

DRUGS (7)
  1. RALTEGRAVIR. [Suspect]
     Active Substance: RALTEGRAVIR
     Indication: HIV INFECTION
     Route: 065
  2. ATAZANAVIR [Suspect]
     Active Substance: ATAZANAVIR
     Indication: HIV INFECTION
     Route: 065
  3. EFAVIRENZ [Suspect]
     Active Substance: EFAVIRENZ
     Indication: HIV INFECTION
     Route: 065
  4. LOPINAVIR [Suspect]
     Active Substance: LOPINAVIR
     Indication: HIV INFECTION
     Route: 065
  5. SAQUINAVIR [Suspect]
     Active Substance: SAQUINAVIR
     Indication: HIV INFECTION
     Route: 065
  6. NEVIRAPINE. [Suspect]
     Active Substance: NEVIRAPINE
     Indication: HIV INFECTION
     Route: 065
  7. ENFUVIRTIDE [Suspect]
     Active Substance: ENFUVIRTIDE
     Indication: HIV INFECTION
     Route: 065

REACTIONS (16)
  - Pneumocystis jirovecii pneumonia [Unknown]
  - Psychotic disorder [Unknown]
  - Herpes zoster [Unknown]
  - Pneumonia [Unknown]
  - Neurocryptococcosis [Unknown]
  - Pyelonephritis [Unknown]
  - Gastroenteritis [Unknown]
  - Sinusitis [Unknown]
  - Overdose [Unknown]
  - Abscess [Unknown]
  - Respiratory tract infection [Unknown]
  - Seizure [Unknown]
  - Abscess limb [Unknown]
  - Urinary tract infection [Unknown]
  - Anogenital warts [Unknown]
  - Suicide attempt [Unknown]
